FAERS Safety Report 11074354 (Version 2)
Quarter: 2015Q2

REPORT INFORMATION
  Report Type: Spontaneous
  Country: CH (occurrence: FR)
  Receive Date: 20150428
  Receipt Date: 20150511
  Transmission Date: 20150821
  Serious: Yes (Hospitalization)
  Sender: FDA-Public Use
  Company Number: CH-LPDUSPRD-20150258

PATIENT
  Sex: Female

DRUGS (1)
  1. VENOFER [Suspect]
     Active Substance: IRON SUCROSE
     Dosage: 300 MG ( 1 IN 1 TOTAL)
     Route: 041
     Dates: start: 20150320, end: 20150320

REACTIONS (1)
  - Infusion site thrombosis [Recovering/Resolving]

NARRATIVE: CASE EVENT DATE: 20150323
